FAERS Safety Report 8197382-4 (Version None)
Quarter: 2012Q1

REPORT INFORMATION
  Report Type: 
  Country: None (occurrence: None)
  Receive Date: 20120309
  Receipt Date: 20120302
  Transmission Date: 20120608
  Serious: Yes (Hospitalization, Other)
  Sender: FDA-Public Use
  Company Number: US-JNJFOC-20120206619

PATIENT
  Sex: Female

DRUGS (7)
  1. PRILOSEC [Concomitant]
     Indication: GASTROOESOPHAGEAL REFLUX DISEASE
     Route: 048
  2. ALL OTHER THERAPEUTIC PRODUCT [Concomitant]
     Route: 048
  3. PREDNISONE [Concomitant]
     Route: 048
  4. BIOIDENTICAL HORMONES [Concomitant]
     Route: 065
  5. OMEPRAZOLE [Concomitant]
     Route: 048
  6. NYSTATIN [Concomitant]
     Route: 048
  7. LEVAQUIN [Suspect]
     Indication: UPPER RESPIRATORY TRACT INFECTION
     Route: 048
     Dates: start: 20110621, end: 20110625

REACTIONS (10)
  - DYSGEUSIA [None]
  - FATIGUE [None]
  - ANAEMIA [None]
  - LEUKOCYTOSIS [None]
  - DRUG HYPERSENSITIVITY [None]
  - DRUG INEFFECTIVE [None]
  - TUBULOINTERSTITIAL NEPHRITIS [None]
  - WEIGHT DECREASED [None]
  - ORAL CANDIDIASIS [None]
  - RENAL FAILURE ACUTE [None]
